FAERS Safety Report 7709156-6 (Version None)
Quarter: 2011Q3

REPORT INFORMATION
  Report Type: 
  Country: None (occurrence: None)
  Receive Date: 20110825
  Receipt Date: 20110816
  Transmission Date: 20111222
  Serious: Yes (Disabling, Other)
  Sender: FDA-Public Use
  Company Number: PHHY2011NZ71141

PATIENT
  Sex: Male

DRUGS (6)
  1. CLOZAPINE [Suspect]
     Indication: PSYCHOTIC DISORDER
     Dosage: 25 MG/DAY
     Route: 048
     Dates: start: 20090227, end: 20110617
  2. LAXSOL [Concomitant]
     Indication: CONSTIPATION
     Dosage: 2/DAY
  3. RISPERIDONE [Concomitant]
     Indication: PSYCHOTIC DISORDER
     Dosage: 0.25 MG/DAY
     Route: 048
     Dates: end: 20110610
  4. CETIRIZINE HCL [Concomitant]
     Indication: PSORIASIS
     Dosage: 10 MG
  5. CILAZAPRIL [Concomitant]
     Indication: BLOOD PRESSURE INCREASED
     Dosage: 0.5 MG
  6. FOLATE SODIUM [Concomitant]
     Dosage: 5 MG

REACTIONS (6)
  - DELIRIUM [None]
  - FALL [None]
  - SEDATION [None]
  - DEPRESSED LEVEL OF CONSCIOUSNESS [None]
  - DEMENTIA [None]
  - FEMORAL NECK FRACTURE [None]
